FAERS Safety Report 19824454 (Version 2)
Quarter: 2022Q3

REPORT INFORMATION
  Report Type: Report from Study
  Country: US (occurrence: US)
  Receive Date: 20210913
  Receipt Date: 20220805
  Transmission Date: 20221026
  Serious: Yes (Death, Life-Threatening, Hospitalization, Other)
  Sender: FDA-Public Use
  Company Number: US-BRISTOL-MYERS SQUIBB COMPANY-BMS-2021-091579

PATIENT
  Age: 66 Year
  Sex: Female
  Weight: 54.7 kg

DRUGS (4)
  1. NIVOLUMAB [Suspect]
     Active Substance: NIVOLUMAB
     Indication: Renal cell carcinoma
     Dosage: UNK
     Route: 065
     Dates: start: 20200723
  2. NIVOLUMAB [Suspect]
     Active Substance: NIVOLUMAB
     Dosage: TOTAL DOSE ADMINISTERED THIS COURSE 480 MG
     Route: 065
     Dates: end: 20210725
  3. CABOZANTINIB [Suspect]
     Active Substance: CABOZANTINIB
     Indication: Renal cell carcinoma
     Dosage: UNK
     Route: 065
     Dates: start: 20200723
  4. CABOZANTINIB [Suspect]
     Active Substance: CABOZANTINIB
     Dosage: TOTAL DOSE ADMINISTERED THIS COURSE 760 MG
     Route: 065
     Dates: end: 20210803

REACTIONS (4)
  - Death [Fatal]
  - Hypoglycaemia [Unknown]
  - Confusional state [Unknown]
  - Vomiting [Unknown]

NARRATIVE: CASE EVENT DATE: 20210810
